APPROVED DRUG PRODUCT: DIFLUNISAL
Active Ingredient: DIFLUNISAL
Strength: 500MG
Dosage Form/Route: TABLET;ORAL
Application: A073673 | Product #001 | TE Code: AB
Applicant: TEVA PHARMACEUTICALS USA INC
Approved: Jul 31, 1992 | RLD: No | RS: Yes | Type: RX